FAERS Safety Report 4581442-0 (Version None)
Quarter: 2005Q1

REPORT INFORMATION
  Report Type: 
  Country: None (occurrence: None)
  Receive Date: 20050214
  Receipt Date: 20041025
  Transmission Date: 20050727
  Serious: No
  Sender: FDA-Public Use
  Company Number: US-GLAXOSMITHKLINE-A0531234A

PATIENT
  Age: 22 Year
  Sex: Male

DRUGS (3)
  1. LAMICTAL [Suspect]
     Indication: DEPRESSION
     Dosage: 25MG PER DAY
     Route: 048
     Dates: start: 20040412
  2. EFFEXOR XR [Concomitant]
     Indication: DEPRESSION
     Dosage: 75MG UNKNOWN
     Route: 048
     Dates: start: 20040801
  3. LEXAPRO [Concomitant]
     Indication: DEPRESSION
     Route: 065
     Dates: start: 20040823

REACTIONS (2)
  - RASH ERYTHEMATOUS [None]
  - URTICARIA [None]
